FAERS Safety Report 4269830-3 (Version None)
Quarter: 2004Q1

REPORT INFORMATION
  Report Type: 
  Country: None (occurrence: None)
  Receive Date: 20040112
  Receipt Date: 20040105
  Transmission Date: 20041129
  Serious: Yes (Other)
  Sender: FDA-Public Use
  Company Number: HQWYE537011DEC03

PATIENT
  Age: 58 Year
  Sex: Male
  Weight: 79.9 kg

DRUGS (7)
  1. EFFEXOR XR [Suspect]
     Indication: DEPRESSION
     Dosage: SEE IMAGE
     Route: 048
     Dates: start: 20030801, end: 20031101
  2. EFFEXOR XR [Suspect]
     Indication: DEPRESSION
     Dosage: SEE IMAGE
     Route: 048
     Dates: start: 20031101, end: 20031205
  3. EFFEXOR XR [Suspect]
     Indication: DEPRESSION
     Dosage: SEE IMAGE
     Route: 048
     Dates: start: 20031206, end: 20031208
  4. EFFEXOR XR [Suspect]
     Indication: DEPRESSION
     Dosage: SEE IMAGE
     Route: 048
     Dates: start: 20031209
  5. REMERON [Concomitant]
  6. ASPIRIN [Concomitant]
  7. KLONOPIN [Concomitant]

REACTIONS (11)
  - ANORGASMIA [None]
  - BLOOD PRESSURE INCREASED [None]
  - DRY MOUTH [None]
  - EYE DISORDER [None]
  - FLUSHING [None]
  - HEADACHE [None]
  - HYPERHIDROSIS [None]
  - MACULOPATHY [None]
  - RETINAL OEDEMA [None]
  - SCOTOMA [None]
  - TREMOR [None]
